FAERS Safety Report 23299036 (Version 1)
Quarter: 2023Q4

REPORT INFORMATION
  Report Type: Spontaneous
  Country: US (occurrence: US)
  Receive Date: 20231215
  Receipt Date: 20231215
  Transmission Date: 20240110
  Serious: No
  Sender: FDA-Public Use
  Company Number: US-ENDO PHARMACEUTICALS INC-2023-000002

PATIENT
  Sex: Male
  Weight: 104.76 kg

DRUGS (18)
  1. XIAFLEX [Suspect]
     Active Substance: COLLAGENASE CLOSTRIDIUM HISTOLYTICUM
     Indication: Peyronie^s disease
     Dosage: 0.58 MG, UNKNOWN (CYCLE ONE, INJECTION ONE)
     Route: 051
     Dates: start: 20220823
  2. XIAFLEX [Suspect]
     Active Substance: COLLAGENASE CLOSTRIDIUM HISTOLYTICUM
     Dosage: 0.58 MG, UNKNOWN (CYCLE ONE, INJECTION TWO)
     Route: 051
     Dates: start: 20220921
  3. XIAFLEX [Suspect]
     Active Substance: COLLAGENASE CLOSTRIDIUM HISTOLYTICUM
     Dosage: 0.58 MG, UNKNOWN (CYCLE TWO, INJECTION ONE)
     Route: 051
     Dates: start: 20221103
  4. XIAFLEX [Suspect]
     Active Substance: COLLAGENASE CLOSTRIDIUM HISTOLYTICUM
     Dosage: 0.58 MG, UNKNOWN (CYCLE TWO, INJECTION TWO)
     Route: 051
     Dates: start: 20221108
  5. AMLODIPINE [Concomitant]
     Active Substance: AMLODIPINE BESYLATE
     Indication: Product used for unknown indication
     Dosage: 1 DF, OD
     Route: 048
     Dates: start: 20220627
  6. ATORVASTATIN [Concomitant]
     Active Substance: ATORVASTATIN
     Indication: Product used for unknown indication
     Dosage: 1 DF, OD
     Route: 048
     Dates: start: 20220224, end: 20220922
  7. ATORVASTATIN [Concomitant]
     Active Substance: ATORVASTATIN
     Dosage: 1 DF, OD
     Route: 048
     Dates: start: 20220922
  8. GABAPENTIN [Concomitant]
     Active Substance: GABAPENTIN
     Indication: Product used for unknown indication
     Dosage: 1 DF, BID
     Route: 048
     Dates: start: 20220627, end: 20221004
  9. GABAPENTIN [Concomitant]
     Active Substance: GABAPENTIN
     Dosage: 1 DF, BID
     Route: 048
     Dates: start: 20221004
  10. HYDROCHLOROTHIAZIDE\LOSARTAN POTASSIUM [Concomitant]
     Active Substance: HYDROCHLOROTHIAZIDE\LOSARTAN POTASSIUM
     Indication: Product used for unknown indication
     Dosage: 1 DF, OD
     Route: 048
     Dates: start: 20211006, end: 20221004
  11. HYDROCHLOROTHIAZIDE\LOSARTAN POTASSIUM [Concomitant]
     Active Substance: HYDROCHLOROTHIAZIDE\LOSARTAN POTASSIUM
     Dosage: 1 DF, OD
     Route: 048
     Dates: start: 20221004
  12. METFORMIN [Concomitant]
     Active Substance: METFORMIN HYDROCHLORIDE
     Indication: Product used for unknown indication
     Dosage: 1 DF, BID (WITH MEALS)
     Route: 048
     Dates: start: 20220418, end: 20221021
  13. METFORMIN [Concomitant]
     Active Substance: METFORMIN HYDROCHLORIDE
     Dosage: 1 DF, BID (WITH MEALS)
     Route: 048
     Dates: start: 20221021
  14. MODAFINIL [Concomitant]
     Active Substance: MODAFINIL
     Indication: Product used for unknown indication
     Dosage: 1 DF, BID
     Route: 048
     Dates: start: 20220805, end: 20221104
  15. MODAFINIL [Concomitant]
     Active Substance: MODAFINIL
     Dosage: 1 DF, BID
     Route: 048
     Dates: start: 20221104
  16. PHENYLEPHRINE [Concomitant]
     Active Substance: PHENYLEPHRINE HYDROCHLORIDE
     Indication: Product used for unknown indication
     Dosage: 500 ?G, SINGLE
     Route: 042
  17. ONE TOUCH ULTRA TEST [Concomitant]
     Indication: Product used for unknown indication
     Dosage: UNK UNKNOWN, OD (USE TO TEST ONCE A DAY)
     Route: 065
     Dates: start: 20200228
  18. DITROPAN [Concomitant]
     Active Substance: OXYBUTYNIN CHLORIDE
     Indication: Urinary tract disorder
     Dosage: 1 DF, DAILY
     Route: 048
     Dates: start: 20220726, end: 20221013

REACTIONS (5)
  - Soft tissue swelling [Unknown]
  - Discomfort [Unknown]
  - Pain [Unknown]
  - Ecchymosis [Unknown]
  - Penile haemorrhage [Unknown]
